FAERS Safety Report 17107131 (Version 1)
Quarter: 2019Q4

REPORT INFORMATION
  Report Type: Spontaneous
  Country: BG (occurrence: BG)
  Receive Date: 20191203
  Receipt Date: 20191203
  Transmission Date: 20200122
  Serious: Yes (Other)
  Sender: FDA-Public Use
  Company Number: BG-ASTRAZENECA-2019SF70485

PATIENT
  Age: 45 Year
  Sex: Female

DRUGS (4)
  1. MONTELUCAST [Concomitant]
     Active Substance: MONTELUKAST SODIUM
  2. SALBUTAMOL [Concomitant]
     Active Substance: ALBUTEROL
     Dosage: 100.0UG AS REQUIRED
  3. TIOTROPIUM SOFT MIST [Concomitant]
  4. BUDESONIDE/FORMOTEROL [Suspect]
     Active Substance: BUDESONIDE\FORMOTEROL
     Indication: ASTHMA
     Dosage: 160/4.5 MCG 2X2 INHALATIONS
     Route: 055

REACTIONS (1)
  - Asthma [Unknown]
